FAERS Safety Report 7464873-0 (Version None)
Quarter: 2011Q2

REPORT INFORMATION
  Report Type: 
  Country: None (occurrence: None)
  Receive Date: 20110509
  Receipt Date: 20110427
  Transmission Date: 20111010
  Serious: Yes (Other)
  Sender: FDA-Public Use
  Company Number: US-BAYER-2011-036797

PATIENT
  Age: 38 Year
  Sex: Female

DRUGS (9)
  1. CYMBALTA [Concomitant]
  2. PRENATAL VITAMINS [Concomitant]
  3. CHONDROITIN SULFATE [Concomitant]
  4. GLUCOSAMINE [Concomitant]
  5. FEXOFENADINE [Concomitant]
  6. CIPROFLOXACIN [Concomitant]
     Indication: URINARY TRACT INFECTION
  7. MIRENA [Suspect]
     Dosage: 20 ?G, CONT
     Route: 015
     Dates: start: 20100105, end: 20110413
  8. PHENAZOPYRIDINE HCL TAB [Concomitant]
     Indication: URINARY TRACT INFECTION
  9. OMEPRAZOLE [Concomitant]

REACTIONS (2)
  - SUICIDE ATTEMPT [None]
  - ABNORMAL BEHAVIOUR [None]
